FAERS Safety Report 6530673-9 (Version None)
Quarter: 2010Q1

REPORT INFORMATION
  Report Type: 
  Country: None (occurrence: None)
  Receive Date: 20100108
  Receipt Date: 20081215
  Transmission Date: 20100710
  Serious: No
  Sender: FDA-Public Use
  Company Number: A0756453A

PATIENT
  Age: 61 Year
  Sex: Female
  Weight: 61.8 kg

DRUGS (6)
  1. LOVAZA [Suspect]
     Dosage: 1G FOUR TIMES PER DAY
     Route: 048
     Dates: start: 20081031
  2. LISINOPRIL [Concomitant]
     Route: 048
     Dates: start: 20080501
  3. HYDROCHLOROTHIAZIDE [Concomitant]
     Route: 048
     Dates: start: 20081001
  4. ASPIRIN [Concomitant]
     Route: 048
     Dates: start: 20080501
  5. GLUCOSAMINE [Concomitant]
     Route: 048
  6. TYLENOL (CAPLET) [Concomitant]
     Dosage: 500MG AS REQUIRED
     Route: 048

REACTIONS (1)
  - DIARRHOEA [None]
